FAERS Safety Report 19249579 (Version 2)
Quarter: 2021Q2

REPORT INFORMATION
  Report Type: Other
  Country: PL (occurrence: PL)
  Receive Date: 20210512
  Receipt Date: 20210516
  Transmission Date: 20210717
  Serious: Yes (Life-Threatening, Hospitalization)
  Sender: FDA-Public Use
  Company Number: PL-DEXPHARM-20210638

PATIENT
  Age: 36 Year
  Sex: Male

DRUGS (2)
  1. DICLOFENAC [Suspect]
     Active Substance: DICLOFENAC
  2. BACLOFEN. [Suspect]
     Active Substance: BACLOFEN

REACTIONS (2)
  - Toxicity to various agents [Recovered/Resolved]
  - Drug abuse [Unknown]
